FAERS Safety Report 10270298 (Version 5)
Quarter: 2014Q3

REPORT INFORMATION
  Report Type: Report from Study
  Country: US (occurrence: US)
  Receive Date: 20140701
  Receipt Date: 20140811
  Transmission Date: 20150326
  Serious: Yes (Hospitalization, Other)
  Sender: FDA-Public Use
  Company Number: US-TAKEDA-2014MPI001782

PATIENT
  Age: 63 Year
  Sex: Male
  Weight: 77.11 kg

DRUGS (9)
  1. ZOFRAN                             /00955301/ [Concomitant]
     Active Substance: ONDANSETRON HYDROCHLORIDE
     Dosage: 8 MG, QD
     Route: 048
  2. METOPROLOL [Concomitant]
     Active Substance: METOPROLOL
     Dosage: UNK, Q6HR
     Route: 042
  3. LINEZOLID. [Concomitant]
     Active Substance: LINEZOLID
     Route: 042
  4. MEROPENEM. [Concomitant]
     Active Substance: MEROPENEM
  5. ALLOPURINOL. [Concomitant]
     Active Substance: ALLOPURINOL
     Dosage: 100 MG, QD
  6. VELCADE [Suspect]
     Active Substance: BORTEZOMIB
     Indication: PLASMA CELL MYELOMA
     Dosage: 1.3 MG, UNK
     Route: 042
     Dates: start: 20131017
  7. DEXAMETHASONE. [Concomitant]
     Active Substance: DEXAMETHASONE
     Indication: PLASMA CELL MYELOMA
     Dosage: 4 MG, UNK
     Route: 048
  8. SODIUM BICARBONATE. [Concomitant]
     Active Substance: SODIUM BICARBONATE
     Dosage: 150 MEQ AT 75 CC AN HOUR
     Route: 042
  9. PHOSLO [Concomitant]
     Active Substance: CALCIUM ACETATE
     Dosage: 667 MG, UNK

REACTIONS (5)
  - Laceration [Not Recovered/Not Resolved]
  - Accident at work [Unknown]
  - Pulmonary contusion [Not Recovered/Not Resolved]
  - Rib fracture [Not Recovered/Not Resolved]
  - Pyrexia [Recovered/Resolved]

NARRATIVE: CASE EVENT DATE: 20140620
